FAERS Safety Report 9059150 (Version 1)
Quarter: 2013Q1

REPORT INFORMATION
  Report Type: Spontaneous
  Country: US (occurrence: US)
  Receive Date: 20130211
  Receipt Date: 20130211
  Transmission Date: 20140127
  Serious: No
  Sender: FDA-Public Use
  Company Number: US-BRISTOL-MYERS SQUIBB COMPANY-17041849

PATIENT
  Sex: 0
  Weight: 60 kg

DRUGS (2)
  1. METFORMIN HCL [Suspect]
  2. LANTUS [Suspect]
     Dosage: 1 DF = 15 UNITS
     Route: 058

REACTIONS (2)
  - Weight decreased [Not Recovered/Not Resolved]
  - Decreased appetite [Not Recovered/Not Resolved]
